FAERS Safety Report 6021420-8 (Version None)
Quarter: 2008Q4

REPORT INFORMATION
  Report Type: 
  Country: None (occurrence: None)
  Receive Date: 20081229
  Receipt Date: 20081229
  Transmission Date: 20090506
  Serious: Yes (Hospitalization)
  Sender: FDA-Public Use
  Company Number: B0552000A

PATIENT
  Age: 47 Year
  Sex: Male

DRUGS (2)
  1. ALBENDAZOLE [Suspect]
     Route: 048
  2. COLD MEDICATION [Concomitant]

REACTIONS (11)
  - CHILLS [None]
  - EOSINOPHIL COUNT INCREASED [None]
  - HEPATIC NECROSIS [None]
  - HEPATIC STEATOSIS [None]
  - HEPATITIS [None]
  - MYALGIA [None]
  - NAUSEA [None]
  - OCULAR ICTERUS [None]
  - PYREXIA [None]
  - RASH [None]
  - VOMITING [None]
